FAERS Safety Report 19381254 (Version 1)
Quarter: 2021Q2

REPORT INFORMATION
  Report Type: Spontaneous
  Country: US (occurrence: US)
  Receive Date: 20210604
  Receipt Date: 20210604
  Transmission Date: 20210717
  Serious: Yes (Other)
  Sender: FDA-Public Use
  Company Number: None

PATIENT
  Age: 75 Year
  Sex: Male
  Weight: 85.5 kg

DRUGS (4)
  1. ADVIL [Concomitant]
     Active Substance: IBUPROFEN
  2. ATACAND [Concomitant]
     Active Substance: CANDESARTAN CILEXETIL
  3. ASPIRIN. [Concomitant]
     Active Substance: ASPIRIN
  4. VASCEPA [Suspect]
     Active Substance: ICOSAPENT ETHYL
     Indication: BLOOD TRIGLYCERIDES INCREASED
     Dosage: ?          QUANTITY:1 CAPSULE(S);?
     Route: 048
     Dates: start: 20190220, end: 20201211

REACTIONS (4)
  - Immune system disorder [None]
  - Arthralgia [None]
  - Atrial fibrillation [None]
  - Peripheral swelling [None]

NARRATIVE: CASE EVENT DATE: 20200630
